FAERS Safety Report 8088116-2 (Version None)
Quarter: 2012Q1

REPORT INFORMATION
  Report Type: 
  Country: None (occurrence: None)
  Receive Date: 20120131
  Receipt Date: 20120126
  Transmission Date: 20120608
  Serious: Yes (Hospitalization)
  Sender: FDA-Public Use
  Company Number: US-BIOGENIDEC-2012BI001944

PATIENT
  Age: 41 Year
  Sex: Female

DRUGS (3)
  1. ANTI-EPILEPTIC DRUG (AED) [Concomitant]
  2. TYSABRI [Suspect]
     Indication: MULTIPLE SCLEROSIS
     Route: 042
     Dates: start: 20080919
  3. ANTI-EPILEPTIC DRUG (AED) [Concomitant]
     Indication: PARTIAL SEIZURES WITH SECONDARY GENERALISATION

REACTIONS (1)
  - CONVULSION [None]
